FAERS Safety Report 6646860-5 (Version None)
Quarter: 2010Q1

REPORT INFORMATION
  Report Type: 
  Country: None (occurrence: None)
  Receive Date: 20100323
  Receipt Date: 20100311
  Transmission Date: 20100710
  Serious: Yes (Other)
  Sender: FDA-Public Use
  Company Number: US-PFIZER INC-2010031939

PATIENT
  Sex: Female
  Weight: 58.957 kg

DRUGS (5)
  1. GABAPENTIN [Suspect]
     Indication: CONVULSION
     Dosage: 300 MG, 2X/DAY
     Dates: start: 20080401
  2. GABAPENTIN [Suspect]
     Dosage: 300 MG IN THE MORNING, 300 MG IN THE AFTERNOON, 400 MG IN THE NIGHT AND 400 MG IN THE MIDNIGHT
     Dates: start: 20090601
  3. ZOLPIDEM [Concomitant]
     Indication: SLEEP DISORDER
     Dosage: 2.5 MG, UNK
     Dates: start: 19970101
  4. ZOLPIDEM [Concomitant]
     Indication: CONVULSION
  5. CLONAZEPAM [Concomitant]
     Indication: BRAIN INJURY
     Dosage: 0.125 MG, 1X/DAY
     Dates: start: 20080401

REACTIONS (1)
  - COELIAC DISEASE [None]
